FAERS Safety Report 9214872 (Version 1)
Quarter: 2013Q2

REPORT INFORMATION
  Report Type: Spontaneous
  Country: CH (occurrence: CH)
  Receive Date: 20130405
  Receipt Date: 20130405
  Transmission Date: 20140414
  Serious: Yes (Other)
  Sender: FDA-Public Use
  Company Number: CH-BRISTOL-MYERS SQUIBB COMPANY-18758151

PATIENT
  Age: 1 Day
  Sex: Female

DRUGS (3)
  1. ABILIFY [Suspect]
     Dosage: 15MG:MORNING?10MG:EVENING
     Route: 064
  2. TEMESTA [Suspect]
     Route: 064
  3. NITROFURANTOIN [Suspect]
     Dates: start: 2012, end: 20121126

REACTIONS (1)
  - Foetal growth restriction [Unknown]
